FAERS Safety Report 20469045 (Version 1)
Quarter: 2022Q1

REPORT INFORMATION
  Report Type: Report from Study
  Country: US (occurrence: US)
  Receive Date: 20220214
  Receipt Date: 20220214
  Transmission Date: 20220423
  Serious: No
  Sender: FDA-Public Use
  Company Number: US-PHARMACOVIGILANCE-US-KAD-21-00066

PATIENT
  Age: 49 Year
  Sex: Female

DRUGS (1)
  1. REZUROCK [Suspect]
     Active Substance: BELUMOSUDIL
     Indication: Graft versus host disease
     Dosage: 200 MILLIGRAM
     Dates: start: 20210907, end: 20211027

REACTIONS (10)
  - Atrial fibrillation [Unknown]
  - Scleral disorder [Unknown]
  - Upper-airway cough syndrome [Unknown]
  - Tremor [Unknown]
  - Feeling abnormal [Unknown]
  - Hypertension [Unknown]
  - Headache [Unknown]
  - Nausea [Unknown]
  - Nasal congestion [Unknown]
  - Fatigue [Unknown]

NARRATIVE: CASE EVENT DATE: 20211021
